FAERS Safety Report 15106425 (Version 1)
Quarter: 2018Q3

REPORT INFORMATION
  Report Type: Spontaneous
  Country: GB (occurrence: GB)
  Receive Date: 20180704
  Receipt Date: 20180704
  Transmission Date: 20181010
  Serious: Yes (Other)
  Sender: FDA-Public Use
  Company Number: GB-AMGEN-GBRSP2018088488

PATIENT
  Age: 71 Year
  Sex: Female
  Weight: 63.5 kg

DRUGS (2)
  1. PROLIA [Suspect]
     Active Substance: DENOSUMAB
     Indication: OSTEOPOROSIS
     Dosage: UNKNOWN
     Route: 051
  2. ANADIN EXTRA [Concomitant]
     Active Substance: ACETAMINOPHEN\ASPIRIN\CAFFEINE
     Dosage: UNK

REACTIONS (8)
  - Back pain [Unknown]
  - Tremor [Not Recovered/Not Resolved]
  - Arthralgia [Unknown]
  - Alopecia [Not Recovered/Not Resolved]
  - Condition aggravated [Unknown]
  - Pallor [Unknown]
  - Malaise [Not Recovered/Not Resolved]
  - Dizziness [Not Recovered/Not Resolved]

NARRATIVE: CASE EVENT DATE: 20180521
